FAERS Safety Report 4307157-1 (Version None)
Quarter: 2004Q1

REPORT INFORMATION
  Report Type: 
  Country: None (occurrence: None)
  Receive Date: 20040225
  Receipt Date: 20040210
  Transmission Date: 20041129
  Serious: Yes (Death, Hospitalization)
  Sender: FDA-Public Use
  Company Number: 202063

PATIENT
  Age: 65 Year
  Sex: Male

DRUGS (2)
  1. MABTHERA(RITUXIMAB) CONC FOR SOLUTION FOR INFUSION [Suspect]
     Indication: NON-HODGKIN'S LYMPHOMA
     Dosage: INTRAVENOUS
     Route: 042
  2. BENDAMUSTINE(BENDAMUSTINE) [Suspect]
     Indication: NON-HODGKIN'S LYMPHOMA
     Dosage: 90 MG/M2, INTRAVENOUS
     Route: 042

REACTIONS (15)
  - ARTHRALGIA [None]
  - BLOOD CULTURE POSITIVE [None]
  - CARDIOMYOPATHY [None]
  - CHLAMYDIAL INFECTION [None]
  - CLOSTRIDIAL INFECTION [None]
  - CORYNEBACTERIUM INFECTION [None]
  - CULTURE STOOL POSITIVE [None]
  - FATIGUE [None]
  - GENERAL PHYSICAL HEALTH DETERIORATION [None]
  - IMMUNODEFICIENCY [None]
  - MOBILITY DECREASED [None]
  - MYCOPLASMA INFECTION [None]
  - SEPSIS [None]
  - STAPHYLOCOCCAL INFECTION [None]
  - WEIGHT DECREASED [None]
